FAERS Safety Report 19369588 (Version 2)
Quarter: 2021Q3

REPORT INFORMATION
  Report Type: Report from Study
  Country: US (occurrence: US)
  Receive Date: 20210603
  Receipt Date: 20210716
  Transmission Date: 20211014
  Serious: Yes (Other)
  Sender: FDA-Public Use
  Company Number: US-BAYER-2021-128512

PATIENT
  Age: 53 Year
  Sex: Male

DRUGS (3)
  1. STIVARGA [Suspect]
     Active Substance: REGORAFENIB
     Indication: COLORECTAL CANCER
     Dosage: DAILY DOSE 160 MG  FOR 21 DAYS OF 28 DAY CYCLE
     Route: 048
     Dates: start: 20210419, end: 202105
  2. STIVARGA [Suspect]
     Active Substance: REGORAFENIB
     Indication: COLORECTAL CANCER
     Dosage: 120 MG DAILY FOR 21 DAYS OF 28 DAY CYCLE
     Dates: start: 202106, end: 20210629
  3. STIVARGA [Suspect]
     Active Substance: REGORAFENIB
     Indication: COLORECTAL CANCER
     Dosage: DAILY DOSE 120 MG 3 WEEKS ON 1 WEEK OFF
     Route: 048
     Dates: start: 20210522

REACTIONS (15)
  - Odynophagia [Not Recovered/Not Resolved]
  - Pain in extremity [Recovering/Resolving]
  - Gait disturbance [Not Recovered/Not Resolved]
  - Colorectal cancer [Not Recovered/Not Resolved]
  - Dysphonia [Recovering/Resolving]
  - Hyperkeratosis [Not Recovered/Not Resolved]
  - Rash [Recovered/Resolved]
  - Skin exfoliation [Not Recovered/Not Resolved]
  - Mucosal inflammation [Not Recovered/Not Resolved]
  - Liver function test abnormal [Recovering/Resolving]
  - Neuropathy peripheral [Unknown]
  - Asthenia [Not Recovered/Not Resolved]
  - Burning sensation [Not Recovered/Not Resolved]
  - Abnormal loss of weight [Not Recovered/Not Resolved]
  - Stomatitis [Unknown]
